FAERS Safety Report 23433319 (Version 2)
Quarter: 2024Q1

REPORT INFORMATION
  Report Type: Spontaneous
  Country: US (occurrence: US)
  Receive Date: 20240123
  Receipt Date: 20240326
  Transmission Date: 20240409
  Serious: No
  Sender: FDA-Public Use
  Company Number: US-PFIZER INC-PV202300118502

PATIENT
  Age: 74 Year
  Sex: Female
  Weight: 118.37 kg

DRUGS (1)
  1. IBRANCE [Suspect]
     Active Substance: PALBOCICLIB
     Indication: Neoplasm malignant
     Dosage: 125 MG, CYCLIC 21 DAYS THEN STOP 7 DAYS
     Dates: start: 2023

REACTIONS (1)
  - Anxiety [Unknown]
